FAERS Safety Report 12375895 (Version 2)
Quarter: 2016Q2

REPORT INFORMATION
  Report Type: Report from Study
  Country: IN (occurrence: IN)
  Receive Date: 20160517
  Receipt Date: 20160623
  Transmission Date: 20160815
  Serious: Yes (Hospitalization, Other)
  Sender: FDA-Public Use
  Company Number: IN-GLAXOSMITHKLINE-IN2016069192

PATIENT
  Age: 4 Year
  Sex: Male
  Weight: 11 kg

DRUGS (4)
  1. LAMOTRIGINE. [Suspect]
     Active Substance: LAMOTRIGINE
     Indication: CEREBRAL PALSY
     Dosage: IN TWO DIVIDED DOSES FOR 1 TO 4 WEEKS
  2. LAMOTRIGINE. [Suspect]
     Active Substance: LAMOTRIGINE
     Indication: SEIZURE
     Dosage: IN TWO DIVIDED DOSES FOR 1 TO 4 WEEKS
  3. PHENOBARBITONE [Concomitant]
     Active Substance: PHENOBARBITAL
  4. LAMOTRIGINE. [Suspect]
     Active Substance: LAMOTRIGINE
     Dosage: IN TWO DIVIDED DOSES FOR 1 TO 4 WEEKS

REACTIONS (1)
  - Drug reaction with eosinophilia and systemic symptoms [Recovering/Resolving]
